FAERS Safety Report 8435513-9 (Version None)
Quarter: 2012Q2

REPORT INFORMATION
  Report Type: 
  Country: None (occurrence: None)
  Receive Date: 20120614
  Receipt Date: 20120607
  Transmission Date: 20120825
  Serious: Yes (Other)
  Sender: FDA-Public Use
  Company Number: US-PFIZER INC-2012137448

PATIENT
  Sex: Female

DRUGS (4)
  1. LYRICA [Suspect]
     Indication: FIBROMYALGIA
  2. NEURONTIN [Suspect]
     Indication: NEURALGIA
     Dosage: UNK
  3. LYRICA [Suspect]
     Indication: MYALGIA
  4. LYRICA [Suspect]
     Indication: NEURALGIA
     Dosage: 50 MG, UNK

REACTIONS (11)
  - SPINAL OPERATION [None]
  - NECK SURGERY [None]
  - MYALGIA [None]
  - PAIN IN EXTREMITY [None]
  - SOMNOLENCE [None]
  - ASTHMA [None]
  - PAIN [None]
  - MUSCLE CONTRACTIONS INVOLUNTARY [None]
  - DRUG INEFFECTIVE [None]
  - SURGERY [None]
  - INSOMNIA [None]
